FAERS Safety Report 19702967 (Version 1)
Quarter: 2021Q3

REPORT INFORMATION
  Report Type: Other
  Country: CN (occurrence: CN)
  Receive Date: 20210816
  Receipt Date: 20210816
  Transmission Date: 20211014
  Serious: Yes (Death)
  Sender: FDA-Public Use
  Company Number: CN-ROCHE-2889877

PATIENT
  Age: 59 Year
  Sex: Female
  Weight: 52 kg

DRUGS (1)
  1. AVASTIN [Suspect]
     Active Substance: BEVACIZUMAB
     Indication: LUNG ADENOCARCINOMA
     Dosage: FORM OF ADMIN100
     Route: 042
     Dates: start: 20170521, end: 20201020

REACTIONS (1)
  - Death [Fatal]

NARRATIVE: CASE EVENT DATE: 20210623
